FAERS Safety Report 21223046 (Version 1)
Quarter: 2022Q3

REPORT INFORMATION
  Report Type: Spontaneous
  Country: US (occurrence: None)
  Receive Date: 20220817
  Receipt Date: 20220817
  Transmission Date: 20221027
  Serious: Yes (Life-Threatening, Disabling)
  Sender: FDA-Public Use
  Company Number: None

PATIENT
  Sex: Female

DRUGS (2)
  1. SERTRALINE HYDROCHLORIDE [Suspect]
     Active Substance: SERTRALINE HYDROCHLORIDE
     Dosage: OTHER QUANTITY : 1 CAPSULE(S);?
     Route: 048
     Dates: end: 20220731
  2. PRAZOSIN [Suspect]
     Active Substance: PRAZOSIN
     Indication: Depression

REACTIONS (9)
  - Drug hypersensitivity [None]
  - Pharyngeal swelling [None]
  - Dizziness [None]
  - Dehydration [None]
  - Cardiac disorder [None]
  - Syncope [None]
  - Cyanosis [None]
  - Pallor [None]
  - Near death experience [None]

NARRATIVE: CASE EVENT DATE: 20220731
